FAERS Safety Report 8045010-0 (Version None)
Quarter: 2012Q1

REPORT INFORMATION
  Report Type: 
  Country: None (occurrence: None)
  Receive Date: 20120113
  Receipt Date: 20120110
  Transmission Date: 20120608
  Serious: Yes (Death, Hospitalization)
  Sender: FDA-Public Use
  Company Number: PHEH2011US07973

PATIENT
  Sex: Male
  Weight: 76.36 kg

DRUGS (5)
  1. AFINITOR [Suspect]
     Indication: PROSTATE CANCER
     Dosage: 10 MG, DAILY
     Route: 048
     Dates: start: 20100805, end: 20110113
  2. ATENOLOL [Concomitant]
     Indication: HYPERTENSION
     Dosage: 20 MG, QD
     Route: 048
  3. SANDOSTATIN LAR [Concomitant]
     Indication: CARCINOID TUMOUR
     Dosage: UNK
     Route: 030
     Dates: start: 20010101
  4. LASIX [Concomitant]
     Dosage: 10 MG, QD
     Route: 048
  5. ASPIRIN [Concomitant]
     Dosage: 81 MG, QD
     Route: 048

REACTIONS (1)
  - RENAL FAILURE ACUTE [None]
